FAERS Safety Report 10128954 (Version 1)
Quarter: 2014Q2

REPORT INFORMATION
  Report Type: Spontaneous
  Country: US (occurrence: US)
  Receive Date: 20140428
  Receipt Date: 20140428
  Transmission Date: 20141212
  Serious: Yes (Other)
  Sender: FDA-Public Use
  Company Number: US-ASTRAZENECA-2014SE28597

PATIENT
  Age: 70 Year
  Sex: Female

DRUGS (2)
  1. BYDUREON [Suspect]
     Indication: DIABETES MELLITUS
     Route: 065
  2. CRESTOR [Suspect]
     Indication: BLOOD CHOLESTEROL INCREASED
     Route: 048
     Dates: end: 201404

REACTIONS (1)
  - Rhabdomyolysis [Recovered/Resolved]
